FAERS Safety Report 15430049 (Version 1)
Quarter: 2018Q4

REPORT INFORMATION
  Report Type: Spontaneous
  Country: US (occurrence: US)
  Receive Date: 20180926
  Receipt Date: 20180926
  Transmission Date: 20190204
  Serious: No
  Sender: FDA-Public Use
  Company Number: US-ASSERTIO THERAPEUTICS, INC.-US-2017DEP001974

PATIENT

DRUGS (1)
  1. GRALISE [Suspect]
     Active Substance: GABAPENTIN
     Indication: MONONEUROPATHY
     Dosage: 1200 MG, QD
     Route: 048
     Dates: start: 20170823

REACTIONS (3)
  - Depression [Recovering/Resolving]
  - Drug titration error [Unknown]
  - Anger [Recovering/Resolving]

NARRATIVE: CASE EVENT DATE: 2017
